FAERS Safety Report 9753877 (Version 2)
Quarter: 2013Q4

REPORT INFORMATION
  Report Type: Spontaneous
  Country: US (occurrence: US)
  Receive Date: 20131213
  Receipt Date: 20131213
  Transmission Date: 20140711
  Serious: No
  Sender: FDA-Public Use
  Company Number: US-GILEAD-2010-0027759

PATIENT
  Age: 55 Year
  Sex: Male
  Weight: 93.44 kg

DRUGS (7)
  1. LETAIRIS [Suspect]
     Indication: PULMONARY ARTERIAL HYPERTENSION
     Route: 048
     Dates: start: 20081112, end: 201001
  2. LABETALOL [Concomitant]
  3. PROCARDIA [Concomitant]
  4. MINOXIDIL [Concomitant]
  5. SUSTIVA [Concomitant]
  6. COMBIVIR [Concomitant]
  7. PHOSLO [Concomitant]

REACTIONS (1)
  - Aspartate aminotransferase increased [Recovered/Resolved]
